FAERS Safety Report 5267959-4 (Version None)
Quarter: 2007Q1

REPORT INFORMATION
  Report Type: 
  Country: None (occurrence: None)
  Receive Date: 20061213
  Receipt Date: 20031112
  Transmission Date: 20070707
  Serious: Yes (Hospitalization)
  Sender: FDA-Public Use
  Company Number: 2003UW14983

PATIENT
  Age: 41 Year
  Sex: Female
  Weight: 70.7611 kg

DRUGS (5)
  1. IRESSA [Suspect]
     Indication: NON-SMALL CELL LUNG CANCER
     Dates: start: 20030101
  2. ATIVAN [Concomitant]
  3. MORPHINE [Concomitant]
  4. OXYCODONE HCL [Concomitant]
  5. COMBIVENT [Concomitant]

REACTIONS (1)
  - PANCREATITIS [None]
